FAERS Safety Report 8391534-6 (Version None)
Quarter: 2012Q2

REPORT INFORMATION
  Report Type: 
  Country: None (occurrence: None)
  Receive Date: 20120529
  Receipt Date: 20120516
  Transmission Date: 20120825
  Serious: Yes (Other)
  Sender: FDA-Public Use
  Company Number: JP-SANOFI-AVENTIS-2012SA037376

PATIENT

DRUGS (1)
  1. ZOLPIDEM [Suspect]
     Route: 048

REACTIONS (2)
  - FRACTURE [None]
  - FALL [None]
